FAERS Safety Report 10515295 (Version 3)
Quarter: 2014Q4

REPORT INFORMATION
  Report Type: Spontaneous
  Country: GR (occurrence: GR)
  Receive Date: 20141014
  Receipt Date: 20141113
  Transmission Date: 20150528
  Serious: Yes (Other)
  Sender: FDA-Public Use
  Company Number: GR-ROCHE-1473874

PATIENT
  Sex: Female

DRUGS (6)
  1. MIRCERA [Suspect]
     Active Substance: PEGZEREPOETIN ALFA
     Route: 058
     Dates: start: 201312, end: 201312
  2. MIRCERA [Suspect]
     Active Substance: PEGZEREPOETIN ALFA
     Route: 058
     Dates: start: 201310, end: 201310
  3. MIRCERA [Suspect]
     Active Substance: PEGZEREPOETIN ALFA
     Route: 058
     Dates: start: 20140114, end: 20140701
  4. MIRCERA [Suspect]
     Active Substance: PEGZEREPOETIN ALFA
     Route: 058
     Dates: start: 20130731, end: 20131001
  5. MIRCERA [Suspect]
     Active Substance: PEGZEREPOETIN ALFA
     Indication: NEPHROGENIC ANAEMIA
     Route: 058
     Dates: start: 20140701, end: 20141011
  6. MIRCERA [Suspect]
     Active Substance: PEGZEREPOETIN ALFA
     Route: 058
     Dates: start: 201311, end: 201311

REACTIONS (3)
  - Overdose [Unknown]
  - Haematocrit decreased [Unknown]
  - Aplasia [Unknown]
